FAERS Safety Report 5004993-3 (Version None)
Quarter: 2006Q1

REPORT INFORMATION
  Report Type: 
  Country: None (occurrence: None)
  Receive Date: 20060324
  Receipt Date: 20050601
  Transmission Date: 20060701
  Serious: Yes (Other)
  Sender: FDA-Public Use
  Company Number: HQWYE213403JUN05

PATIENT
  Age: 71 Year
  Sex: Female
  Weight: 95.34 kg

DRUGS (4)
  1. LODINE [Suspect]
     Indication: ARTHRITIS
     Dosage: 400 MG 2X PER 1 DAY, ORAL
     Route: 048
     Dates: start: 20050416, end: 20050522
  2. POTASSIUM (POTASSIUM) [Concomitant]
  3. LASIX [Concomitant]
  4. CATAPRES-TTS-1 [Concomitant]

REACTIONS (4)
  - CONSTIPATION [None]
  - DRUG HYPERSENSITIVITY [None]
  - FATIGUE [None]
  - SOMNOLENCE [None]
